FAERS Safety Report 18151262 (Version 1)
Quarter: 2020Q3

REPORT INFORMATION
  Report Type: Spontaneous
  Country: US (occurrence: US)
  Receive Date: 20200814
  Receipt Date: 20200814
  Transmission Date: 20201103
  Serious: Yes (Hospitalization, Other)
  Sender: FDA-Public Use
  Company Number: US-TEVA-2020-US-1814769

PATIENT
  Sex: Female

DRUGS (14)
  1. DETROL [Concomitant]
     Active Substance: TOLTERODINE TARTRATE
  2. BACLOFEN. [Concomitant]
     Active Substance: BACLOFEN
  3. ALLEGRA [Concomitant]
     Active Substance: FEXOFENADINE HYDROCHLORIDE
  4. LISINOPRIL. [Concomitant]
     Active Substance: LISINOPRIL
  5. FUROSEMIDE. [Concomitant]
     Active Substance: FUROSEMIDE
  6. TIZANIDINE. [Concomitant]
     Active Substance: TIZANIDINE
  7. COPAXONE [Suspect]
     Active Substance: GLATIRAMER ACETATE
     Indication: MULTIPLE SCLEROSIS
     Route: 058
     Dates: start: 20180220
  8. LEVOFLOXACIN. [Concomitant]
     Active Substance: LEVOFLOXACIN
  9. VITAMIN D [Concomitant]
     Active Substance: VITAMIN D NOS
  10. CARVEDILOL. [Concomitant]
     Active Substance: CARVEDILOL
  11. METFORMIN [Concomitant]
     Active Substance: METFORMIN HYDROCHLORIDE
  12. VITAMIN C [Concomitant]
     Active Substance: ASCORBIC ACID
  13. LIDODERM [Concomitant]
     Active Substance: LIDOCAINE
  14. TYLENOL [Concomitant]
     Active Substance: ACETAMINOPHEN

REACTIONS (5)
  - Wheelchair user [Unknown]
  - Urinary tract infection [Unknown]
  - Paraesthesia [Unknown]
  - Burning sensation [Unknown]
  - Hypoaesthesia [Unknown]
